FAERS Safety Report 24650870 (Version 1)
Quarter: 2024Q4

REPORT INFORMATION
  Report Type: Spontaneous
  Country: TR (occurrence: TR)
  Receive Date: 20241122
  Receipt Date: 20241122
  Transmission Date: 20250115
  Serious: No
  Sender: ALKEM
  Company Number: TR-ALKEM LABORATORIES LIMITED-TR-ALKEM-2024-05667

PATIENT
  Age: 71 Year
  Sex: Female

DRUGS (2)
  1. OLANZAPINE [Suspect]
     Active Substance: OLANZAPINE
     Indication: Obsessive-compulsive disorder
     Dosage: 5 MILLIGRAM
     Route: 065
  2. ESCITALOPRAM [Suspect]
     Active Substance: ESCITALOPRAM OXALATE
     Indication: Obsessive-compulsive disorder
     Dosage: 10 MILLIGRAM
     Route: 065

REACTIONS (2)
  - Weight increased [Unknown]
  - Drug ineffective [Unknown]
